FAERS Safety Report 6045302-0 (Version None)
Quarter: 2009Q1

REPORT INFORMATION
  Report Type: 
  Country: None (occurrence: None)
  Receive Date: 20090121
  Receipt Date: 20090114
  Transmission Date: 20090719
  Serious: Yes (Death, Hospitalization, Disabling, Other)
  Sender: FDA-Public Use
  Company Number: PHHY2009FR01714

PATIENT
  Sex: Male

DRUGS (6)
  1. AREDIA [Suspect]
     Indication: MULTIPLE MYELOMA
     Dosage: 90 ML / 10 ML POWDER FOR INFUSION SOLUTION, 1 MONTHLY
     Dates: start: 20040309, end: 20050224
  2. ZOMETA [Suspect]
     Indication: MULTIPLE MYELOMA
     Dosage: 4 MG / 5 ML, 1 MONTHLY DOSE
     Dates: start: 20050430
  3. ALKERAN [Concomitant]
     Indication: MULTIPLE MYELOMA
     Dosage: 12 CYCLES
     Dates: start: 20040309, end: 20050224
  4. SOLUPRED [Concomitant]
     Indication: MULTIPLE MYELOMA
     Dosage: UNK
  5. VELCADE [Concomitant]
     Indication: MULTIPLE MYELOMA
     Dosage: FIRST CYCLE
     Dates: start: 20051114
  6. VELCADE [Concomitant]
     Dosage: SECOND CYCLE
     Dates: start: 20051205

REACTIONS (18)
  - ABSCESS MANAGEMENT [None]
  - BACTERIAL INFECTION [None]
  - CARDIAC FAILURE [None]
  - CARDIAC PACEMAKER INSERTION [None]
  - DEATH [None]
  - DENTAL OPERATION [None]
  - FACE AND MOUTH X-RAY ABNORMAL [None]
  - FACIAL PAIN [None]
  - GINGIVAL INFECTION [None]
  - LOOSE TOOTH [None]
  - ORAL DISORDER [None]
  - OSTEITIS [None]
  - OSTEONECROSIS [None]
  - POOR DENTAL CONDITION [None]
  - SENSATION OF PRESSURE [None]
  - SINUS OPERATION [None]
  - SINUS POLYP [None]
  - TOOTH EXTRACTION [None]
